FAERS Safety Report 16249217 (Version 1)
Quarter: 2019Q2

REPORT INFORMATION
  Report Type: Report from Study
  Country: ES (occurrence: ES)
  Receive Date: 20190429
  Receipt Date: 20190429
  Transmission Date: 20190711
  Serious: Yes (Hospitalization)
  Sender: FDA-Public Use
  Company Number: ES-ACCORD-124520

PATIENT
  Age: 83 Year
  Sex: Female

DRUGS (5)
  1. FUROSEMIDE. [Suspect]
     Active Substance: FUROSEMIDE
     Indication: CHRONIC KIDNEY DISEASE
     Route: 048
     Dates: start: 20170628, end: 20180325
  2. LISINOPRIL. [Interacting]
     Active Substance: LISINOPRIL
     Indication: HYPERTENSION
     Route: 048
     Dates: start: 20170216, end: 20180325
  3. ENANTYUM [Interacting]
     Active Substance: DEXKETOPROFEN TROMETAMOL
     Indication: ARTHRALGIA
     Dosage: STRENGTH 12.5 MG, 20 TABLETS
     Route: 048
     Dates: start: 20180309, end: 20180325
  4. GLICLAZIDE [Concomitant]
     Active Substance: GLICLAZIDE
     Indication: DIABETES MELLITUS
     Route: 048
     Dates: start: 20160215, end: 20180325
  5. METFORMIN [Concomitant]
     Active Substance: METFORMIN HYDROCHLORIDE
     Indication: DIABETES MELLITUS
     Route: 048
     Dates: start: 20180228, end: 20180325

REACTIONS (2)
  - Acute kidney injury [Recovered/Resolved]
  - Drug interaction [Unknown]

NARRATIVE: CASE EVENT DATE: 20180318
